FAERS Safety Report 6408214-6 (Version None)
Quarter: 2009Q4

REPORT INFORMATION
  Report Type: 
  Country: None (occurrence: None)
  Receive Date: 20091021
  Receipt Date: 20091012
  Transmission Date: 20100525
  Serious: Yes (Other)
  Sender: FDA-Public Use
  Company Number: US-JNJFOC-20091004178

PATIENT
  Sex: Male
  Weight: 82.56 kg

DRUGS (5)
  1. REMICADE [Suspect]
     Indication: CROHN'S DISEASE
     Route: 042
  2. MERCAPTOPURINE [Concomitant]
     Indication: CROHN'S DISEASE
  3. ENTOCORT EC [Concomitant]
     Indication: CROHN'S DISEASE
  4. QUESTRAN [Concomitant]
     Indication: DIARRHOEA
  5. VITAMIN B-12 [Concomitant]

REACTIONS (2)
  - LUPUS-LIKE SYNDROME [None]
  - SKIN PAPILLOMA [None]
